FAERS Safety Report 6640512-3 (Version None)
Quarter: 2010Q1

REPORT INFORMATION
  Report Type: 
  Country: None (occurrence: None)
  Receive Date: 20100318
  Receipt Date: 20100308
  Transmission Date: 20100710
  Serious: Yes (Hospitalization)
  Sender: FDA-Public Use
  Company Number: GXKR2010DE02710

PATIENT
  Age: 48 Year
  Sex: Female

DRUGS (3)
  1. ISONIAZID [Suspect]
     Indication: PLEURISY
     Route: 065
  2. PYRAZINAMIDE [Interacting]
     Indication: PLEURISY
     Route: 065
  3. RIFAMPICIN [Interacting]
     Indication: PLEURISY
     Route: 065

REACTIONS (8)
  - ACUTE HEPATIC FAILURE [None]
  - DRUG INTERACTION [None]
  - HEPATIC ENCEPHALOPATHY [None]
  - HEPATITIS [None]
  - LEUKOPENIA [None]
  - LIVER TRANSPLANT [None]
  - MICROCYTIC ANAEMIA [None]
  - THROMBOCYTOSIS [None]
